FAERS Safety Report 8488338-2 (Version None)
Quarter: 2012Q3

REPORT INFORMATION
  Report Type: 
  Country: None (occurrence: None)
  Receive Date: 20120705
  Receipt Date: 20120704
  Transmission Date: 20120928
  Serious: Yes (Death)
  Sender: FDA-Public Use
  Company Number: PHHY2011TH110508

PATIENT
  Sex: Female

DRUGS (3)
  1. ERBITUX [Concomitant]
     Dosage: UNK UKN, UNK
     Route: 065
  2. ZOMETA [Suspect]
     Indication: METASTASES TO BONE
     Dosage: 4 MG, QMO
  3. IRINOTECAN HCL [Concomitant]

REACTIONS (1)
  - LUNG INFECTION [None]
